FAERS Safety Report 6457535-X (Version None)
Quarter: 2009Q4

REPORT INFORMATION
  Report Type: 
  Country: None (occurrence: None)
  Receive Date: 20091125
  Receipt Date: 20091113
  Transmission Date: 20100525
  Serious: Yes (Other)
  Sender: FDA-Public Use
  Company Number: PHHY2009FR50139

PATIENT
  Sex: Male

DRUGS (2)
  1. RASILEZ [Suspect]
     Dosage: 150 MG, UNK
     Dates: start: 20091026
  2. RAMIPRIL [Suspect]
     Dosage: 5 MG, BID

REACTIONS (2)
  - DYSPNOEA [None]
  - SWELLING FACE [None]
